FAERS Safety Report 6765192-8 (Version None)
Quarter: 2010Q2

REPORT INFORMATION
  Report Type: 
  Country: None (occurrence: None)
  Receive Date: 20100610
  Receipt Date: 20100610
  Transmission Date: 20101027
  Serious: No
  Sender: FDA-Public Use
  Company Number: None

PATIENT
  Age: 34 Year
  Sex: Female
  Weight: 63.5036 kg

DRUGS (1)
  1. CELEBREX [Suspect]
     Indication: PATELLOFEMORAL PAIN SYNDROME
     Dosage: 200 MG 1 X DAILY PO
     Route: 048
     Dates: start: 20100605, end: 20100608

REACTIONS (4)
  - DEAFNESS UNILATERAL [None]
  - DRUG HYPERSENSITIVITY [None]
  - HYPOACUSIS [None]
  - TINNITUS [None]
